FAERS Safety Report 9031672 (Version 2)
Quarter: 2013Q2

REPORT INFORMATION
  Report Type: Report from Study
  Country: CA (occurrence: CA)
  Receive Date: 20130124
  Receipt Date: 20130506
  Transmission Date: 20140414
  Serious: Yes (Other)
  Sender: FDA-Public Use
  Company Number: PHHY2011CA86510

PATIENT
  Age: 59 Year
  Sex: Female

DRUGS (1)
  1. SANDOSTATIN LAR [Suspect]
     Indication: NEUROENDOCRINE TUMOUR
     Dosage: 30 MG,  ONCE A MONTH
     Route: 030
     Dates: start: 20110830

REACTIONS (7)
  - Blood pressure increased [Unknown]
  - Urinary tract infection [Unknown]
  - Migraine [Unknown]
  - Nausea [Unknown]
  - Vomiting [Unknown]
  - Abdominal pain [Unknown]
  - Flatulence [Unknown]
